FAERS Safety Report 13265010 (Version 2)
Quarter: 2017Q2

REPORT INFORMATION
  Report Type: Spontaneous
  Country: US (occurrence: US)
  Receive Date: 20170223
  Receipt Date: 20170628
  Transmission Date: 20170830
  Serious: No
  Sender: FDA-Public Use
  Company Number: US-GLAXOSMITHKLINE-US2017023336

PATIENT
  Sex: Female

DRUGS (2)
  1. ABREVA [Suspect]
     Active Substance: DOCOSANOL
     Indication: ORAL HERPES
     Dosage: UNK
     Dates: start: 20170127
  2. ABREVA [Suspect]
     Active Substance: DOCOSANOL
     Dosage: UNK
     Dates: start: 20170129

REACTIONS (8)
  - Condition aggravated [Unknown]
  - Application site swelling [Unknown]
  - Incorrect drug administration duration [Unknown]
  - Oral herpes [Unknown]
  - Product quality issue [Unknown]
  - Application site erythema [Unknown]
  - Incorrect dosage administered [Unknown]
  - Purulent discharge [Unknown]
